FAERS Safety Report 12281909 (Version 1)
Quarter: 2016Q2

REPORT INFORMATION
  Report Type: Spontaneous
  Country: NL (occurrence: NL)
  Receive Date: 20160419
  Receipt Date: 20160419
  Transmission Date: 20160815
  Serious: Yes (Congenital Anomaly)
  Sender: FDA-Public Use
  Company Number: NL-PFIZER INC-2015251032

PATIENT
  Sex: Male
  Weight: 2.82 kg

DRUGS (3)
  1. SOMAVERT [Suspect]
     Active Substance: PEGVISOMANT
     Dosage: 20 MG, 1X/DAY
     Route: 064
     Dates: start: 20080318, end: 20150726
  2. SOMAVERT [Suspect]
     Active Substance: PEGVISOMANT
     Indication: ACROMEGALY
     Dosage: 10 MG, UNK
     Route: 064
     Dates: start: 2008
  3. OCTREOTIDE. [Suspect]
     Active Substance: OCTREOTIDE
     Dosage: 20 MG, 2 INJECTIONS PER 4 WEEKS
     Route: 064

REACTIONS (2)
  - Maternal exposure during pregnancy [Unknown]
  - Cleft lip [Unknown]
